FAERS Safety Report 20610496 (Version 1)
Quarter: 2022Q1

REPORT INFORMATION
  Report Type: Spontaneous
  Country: US (occurrence: US)
  Receive Date: 20220318
  Receipt Date: 20220318
  Transmission Date: 20220423
  Serious: No
  Sender: FDA-Public Use
  Company Number: US-BAYER-2022A031929

PATIENT
  Age: 92 Year
  Sex: Female

DRUGS (3)
  1. MIRALAX [Suspect]
     Active Substance: POLYETHYLENE GLYCOL 3350
     Indication: Dyspepsia
     Dosage: UNK
     Route: 048
     Dates: start: 202110, end: 202110
  2. MIRALAX [Suspect]
     Active Substance: POLYETHYLENE GLYCOL 3350
     Indication: Dyspepsia
     Dosage: UNK, BID
     Route: 048
     Dates: start: 202202
  3. COLACE [Concomitant]
     Active Substance: DOCUSATE SODIUM
     Dosage: UNK

REACTIONS (4)
  - Off label use [Unknown]
  - Drug ineffective for unapproved indication [Unknown]
  - Constipation [None]
  - Abdominal distension [Unknown]

NARRATIVE: CASE EVENT DATE: 20210101
